FAERS Safety Report 8573903 (Version 5)
Quarter: 2013Q1

REPORT INFORMATION
  Report Type: Report from Study
  Country: US (occurrence: US)
  Receive Date: 20120522
  Receipt Date: 20130103
  Transmission Date: 20140127
  Serious: Yes (Death)
  Sender: FDA-Public Use
  Company Number: US-GLAXOSMITHKLINE-Z0015215B

PATIENT
  Age: 78 Year
  Sex: Male
  Weight: 69.7 kg

DRUGS (4)
  1. OFATUMUMAB [Suspect]
     Indication: CHRONIC LYMPHOCYTIC LEUKAEMIA
     Route: 042
     Dates: start: 20120410, end: 20120417
  2. BENDAMUSTINE [Suspect]
     Indication: CHRONIC LYMPHOCYTIC LEUKAEMIA
     Dosage: 70MGM2 CYCLIC
     Route: 042
     Dates: start: 20120411, end: 20120412
  3. COUMADIN [Concomitant]
     Indication: DEEP VEIN THROMBOSIS
     Dosage: 4MG AS REQUIRED
     Route: 048
     Dates: start: 20120424
  4. MORPHINE [Concomitant]
     Indication: PAIN
     Dosage: 15MG AS REQUIRED
     Route: 042
     Dates: start: 20120424

REACTIONS (1)
  - Sepsis [Fatal]
